FAERS Safety Report 9192967 (Version 1)
Quarter: 2013Q1

REPORT INFORMATION
  Report Type: Spontaneous
  Country: US (occurrence: None)
  Receive Date: 20130313
  Receipt Date: 20130313
  Transmission Date: 20140127
  Serious: Yes (Hospitalization)
  Sender: FDA-Public Use
  Company Number: 2012PROUSA02350

PATIENT
  Age: 73 Year
  Sex: Male
  Weight: 87.1 kg

DRUGS (14)
  1. PROVENGE (SIPULEUCEL-T) SUSPENSION [Suspect]
     Indication: PROSTATE CANCER METASTATIC
     Route: 042
     Dates: start: 20120611, end: 20120611
  2. ZOCOR (SIMVASTATIN) [Concomitant]
  3. ACETAMINOPHEN W/HYDROCODONE BITARTRATE (HYDROCODONE BITRATE, PARACETAMOL) [Concomitant]
  4. DULOXETINE HYDROCHLORIDE (DULOXETINE HYDROCHLORIDE) [Concomitant]
  5. PREDNISONE (PREDNISONE) [Concomitant]
  6. PREGABALIN (PREGABALIN) [Concomitant]
  7. LEVOTHYROXINE (LEVOTHYROXINE SODIUM) [Concomitant]
  8. DIOVAN HCT (HYDROCHLOROTHIAZIDE, VALSARTAN) [Concomitant]
  9. METOPROLOL (METOPROLOL TARTRATE) [Concomitant]
  10. AVODART (DUTASTERIDE) [Concomitant]
  11. FLOMAX (TAMSULOSIN HYDROCHLORIDE) [Concomitant]
  12. ZOLEDRONIC ACID (ZOLEDRONIC ACID) [Concomitant]
  13. NEURONTIN (GABAPENTIN) [Concomitant]
  14. HEPARIN SODIUM (HEPARIN SODIUM) [Concomitant]

REACTIONS (6)
  - Blood pressure fluctuation [None]
  - Tachycardia [None]
  - Pyrexia [None]
  - Dizziness [None]
  - Dyspnoea [None]
  - Chills [None]
